FAERS Safety Report 9115872 (Version 1)
Quarter: 2013Q1

REPORT INFORMATION
  Report Type: Spontaneous
  Country: US (occurrence: US)
  Receive Date: 20130225
  Receipt Date: 20130225
  Transmission Date: 20140127
  Serious: Yes (Death)
  Sender: FDA-Public Use
  Company Number: US-GLAXOSMITHKLINE-A1012847A

PATIENT
  Age: 41 Year
  Sex: Female

DRUGS (2)
  1. VOTRIENT [Suspect]
     Indication: LEIOMYOSARCOMA
     Dosage: 3TAB PER DAY
     Route: 048
     Dates: start: 20130115
  2. NOT KNOWN [Concomitant]

REACTIONS (1)
  - Death [Fatal]
